FAERS Safety Report 7033160-7 (Version None)
Quarter: 2010Q4

REPORT INFORMATION
  Report Type: 
  Country: None (occurrence: None)
  Receive Date: 20101004
  Receipt Date: 20100916
  Transmission Date: 20110411
  Serious: Yes (Other)
  Sender: FDA-Public Use
  Company Number: DSA_43967_2010

PATIENT
  Sex: Female

DRUGS (2)
  1. ATIVAN [Suspect]
     Indication: PANIC REACTION
     Dosage: (ONE QUARTER OF A 5 MG TABLET BID ORAL)
     Route: 048
     Dates: start: 20001218, end: 20001218
  2. XANAX [Concomitant]

REACTIONS (12)
  - BALANCE DISORDER [None]
  - BURNING SENSATION [None]
  - CHEST DISCOMFORT [None]
  - DIZZINESS [None]
  - EAR DISCOMFORT [None]
  - ERYTHEMA [None]
  - FEELING ABNORMAL [None]
  - GASTRIC DISORDER [None]
  - HYPERSENSITIVITY [None]
  - ORAL DISCOMFORT [None]
  - PRURITUS [None]
  - TREMOR [None]
